FAERS Safety Report 5040052-1 (Version None)
Quarter: 2006Q2

REPORT INFORMATION
  Report Type: 
  Country: None (occurrence: None)
  Receive Date: 20060630
  Receipt Date: 20060623
  Transmission Date: 20061013
  Serious: Yes (Hospitalization)
  Sender: FDA-Public Use
  Company Number: US-JNJFOC-20060102791

PATIENT
  Sex: Female
  Weight: 65.32 kg

DRUGS (23)
  1. REMICADE [Suspect]
     Route: 042
  2. REMICADE [Suspect]
     Route: 042
  3. REMICADE [Suspect]
     Route: 042
  4. REMICADE [Suspect]
     Route: 042
  5. REMICADE [Suspect]
     Route: 042
  6. REMICADE [Suspect]
     Route: 042
  7. REMICADE [Suspect]
     Route: 042
  8. REMICADE [Suspect]
     Route: 042
  9. REMICADE [Suspect]
     Route: 042
  10. REMICADE [Suspect]
     Route: 042
  11. REMICADE [Suspect]
     Route: 042
  12. REMICADE [Suspect]
     Route: 042
  13. REMICADE [Suspect]
     Route: 042
  14. REMICADE [Suspect]
     Route: 042
  15. REMICADE [Suspect]
     Route: 042
  16. REMICADE [Suspect]
     Route: 042
  17. REMICADE [Suspect]
     Indication: CROHN'S DISEASE
     Route: 042
  18. AZATHIOPRINE [Suspect]
     Indication: CROHN'S DISEASE
  19. ANTIDEPRESSANTS [Suspect]
     Indication: CROHN'S DISEASE
  20. PREDNISONE [Suspect]
     Indication: CROHN'S DISEASE
  21. ANTIBIOTICS [Suspect]
     Indication: CROHN'S DISEASE
  22. ANTISPASMODIC [Concomitant]
     Indication: CROHN'S DISEASE
  23. NARCOTIC ANALGESICS [Concomitant]
     Indication: CROHN'S DISEASE

REACTIONS (4)
  - ABSCESS [None]
  - CROHN'S DISEASE [None]
  - DEEP VEIN THROMBOSIS [None]
  - DIVERTICULITIS [None]
